FAERS Safety Report 23727925 (Version 1)
Quarter: 2024Q2

REPORT INFORMATION
  Report Type: Spontaneous
  Country: JP (occurrence: None)
  Receive Date: 20240410
  Receipt Date: 20240410
  Transmission Date: 20240716
  Serious: Yes (Hospitalization)
  Sender: FDA-Public Use
  Company Number: 2024A082408

PATIENT
  Age: 69 Year
  Sex: Male
  Weight: 42 kg

DRUGS (4)
  1. TAGRISSO [Suspect]
     Active Substance: OSIMERTINIB
     Indication: Non-small cell lung cancer
     Route: 048
     Dates: start: 20230208, end: 20240214
  2. SYMPROIC [Concomitant]
     Active Substance: NALDEMEDINE
     Dosage: DOSE UNKNOWN
     Route: 048
     Dates: start: 20231213
  3. CALCIUM CARBONATE\CHOLECALCIFEROL\MAGNESIUM CARBONATE [Concomitant]
     Active Substance: CALCIUM CARBONATE\CHOLECALCIFEROL\MAGNESIUM CARBONATE
     Dosage: DOSE UNKNOWN
     Route: 048
     Dates: start: 20230208
  4. LINZESS [Concomitant]
     Active Substance: LINACLOTIDE
     Dosage: DOSE UNKNOWN
     Route: 048
     Dates: start: 20240201

REACTIONS (1)
  - Cardiac failure acute [Recovered/Resolved]

NARRATIVE: CASE EVENT DATE: 20240206
